FAERS Safety Report 6167732-9 (Version None)
Quarter: 2009Q2

REPORT INFORMATION
  Report Type: 
  Country: None (occurrence: None)
  Receive Date: 20090427
  Receipt Date: 20090423
  Transmission Date: 20091009
  Serious: Yes (Hospitalization)
  Sender: FDA-Public Use
  Company Number: US-ASTRAZENECA-2009UW10211

PATIENT
  Sex: Female

DRUGS (2)
  1. PULMICORT RESPULES [Suspect]
     Indication: CHRONIC OBSTRUCTIVE PULMONARY DISEASE
     Route: 055
  2. DIGOXIN [Concomitant]

REACTIONS (6)
  - CONTUSION [None]
  - COUGH [None]
  - DYSPNOEA [None]
  - MEDICATION ERROR [None]
  - MUSCLE SPASMS [None]
  - OEDEMA PERIPHERAL [None]
